FAERS Safety Report 5215934-8 (Version None)
Quarter: 2007Q1

REPORT INFORMATION
  Report Type: 
  Country: None (occurrence: None)
  Receive Date: 20070123
  Receipt Date: 20070112
  Transmission Date: 20070707
  Serious: Yes (Other)
  Sender: FDA-Public Use
  Company Number: FR-ELI_LILLY_AND_COMPANY-FR200701003014

PATIENT
  Age: 49 Year
  Sex: Female
  Weight: 47 kg

DRUGS (4)
  1. FORTEO [Suspect]
     Indication: OSTEOPOROSIS
     Dosage: 20 UG, DAILY (1/D)
     Route: 058
     Dates: start: 20051101
  2. DAFALGAN                                /FRA/ [Concomitant]
     Indication: PAIN
     Dosage: 6 UNK, DAILY (1/D)
  3. DAFALGAN CODEINE [Concomitant]
     Indication: PAIN
     Dosage: 2 D/F, DAILY (1/D)
  4. MYOLASTAN [Concomitant]
     Indication: PAIN
     Dosage: 3 D/F, UNK

REACTIONS (1)
  - PATHOLOGICAL FRACTURE [None]
